FAERS Safety Report 25667416 (Version 2)
Quarter: 2025Q3

REPORT INFORMATION
  Report Type: Spontaneous
  Country: CN (occurrence: CN)
  Receive Date: 20250811
  Receipt Date: 20250814
  Transmission Date: 20251021
  Serious: Yes (Hospitalization)
  Sender: MERCK SHARP & DOHME LLC
  Company Number: CN-009507513-2316557

PATIENT
  Age: 12 Year
  Sex: Female
  Weight: 40 kg

DRUGS (2)
  1. CILASTATIN SODIUM\IMIPENEM [Suspect]
     Active Substance: CILASTATIN SODIUM\IMIPENEM
     Indication: Anti-infective therapy
     Route: 041
     Dates: start: 20250730, end: 20250731
  2. SODIUM CHLORIDE [Concomitant]
     Active Substance: SODIUM CHLORIDE
     Indication: Medication dilution
     Route: 041
     Dates: start: 20250730, end: 20250731

REACTIONS (8)
  - Chills [Recovering/Resolving]
  - Myalgia [Unknown]
  - Pyrexia [Recovering/Resolving]
  - Tremor [Recovering/Resolving]
  - Skin disorder [Recovering/Resolving]
  - Temperature intolerance [Recovering/Resolving]
  - Cyanosis [Recovering/Resolving]
  - Poor peripheral circulation [Recovering/Resolving]

NARRATIVE: CASE EVENT DATE: 20250731
